FAERS Safety Report 4508831-4 (Version None)
Quarter: 2004Q4

REPORT INFORMATION
  Report Type: 
  Country: None (occurrence: None)
  Receive Date: 20041123
  Receipt Date: 20040909
  Transmission Date: 20050328
  Serious: No
  Sender: FDA-Public Use
  Company Number: US-GLAXOSMITHKLINE-A0525729A

PATIENT
  Age: 55 Year
  Sex: Female
  Weight: 63.6 kg

DRUGS (1)
  1. WELLBUTRIN SR [Suspect]
     Dosage: 300MG PER DAY
     Route: 048
     Dates: start: 20040901, end: 20040905

REACTIONS (1)
  - RASH PAPULAR [None]
